FAERS Safety Report 9879098 (Version 1)
Quarter: 2014Q1

REPORT INFORMATION
  Report Type: Spontaneous
  Country: US (occurrence: US)
  Receive Date: 20140206
  Receipt Date: 20140206
  Transmission Date: 20141002
  Serious: No
  Sender: FDA-Public Use
  Company Number: US-ALLERGAN-1313384US

PATIENT
  Sex: Female

DRUGS (5)
  1. BOTOX [Suspect]
     Indication: SKIN WRINKLING
     Dosage: UNK, SINGLE
     Route: 030
  2. BOTOX [Suspect]
     Indication: SKIN WRINKLING
  3. BOTOX [Suspect]
     Indication: SKIN WRINKLING
  4. JUVEDERM ULTRA PLUS [Suspect]
     Indication: DERMAL FILLER INJECTION
  5. JUVEDERM ULTRA PLUS [Suspect]
     Indication: DERMAL FILLER INJECTION

REACTIONS (1)
  - Facial asymmetry [Unknown]
